FAERS Safety Report 6411810-3 (Version None)
Quarter: 2009Q4

REPORT INFORMATION
  Report Type: 
  Country: None (occurrence: None)
  Receive Date: 20091023
  Receipt Date: 20091019
  Transmission Date: 20100525
  Serious: Yes (Death, Life-Threatening)
  Sender: FDA-Public Use
  Company Number: FR-ASTRAZENECA-2009SE20834

PATIENT
  Age: 20412 Day
  Sex: Male

DRUGS (15)
  1. DIPRIVAN [Suspect]
     Route: 042
     Dates: start: 20090909, end: 20090909
  2. RESTORVOL [Suspect]
     Route: 042
     Dates: start: 20090909, end: 20090909
  3. CEFUROXIME PANPHARMA [Suspect]
     Route: 042
     Dates: start: 20090909, end: 20090909
  4. SUFENTANYL RENAUDIN [Suspect]
     Route: 042
     Dates: start: 20090909, end: 20090909
  5. ATRACURIUM [Suspect]
     Route: 042
     Dates: start: 20090909, end: 20090909
  6. IOMERON-150 [Suspect]
     Route: 042
     Dates: start: 20090909, end: 20090909
  7. SEVOFLURANE BAXTER [Suspect]
     Route: 055
     Dates: start: 20090909, end: 20090909
  8. KARDEGIC [Concomitant]
  9. COVERSYL [Concomitant]
  10. VASTAREL [Concomitant]
  11. TAHOR [Concomitant]
  12. FONZYLANE [Concomitant]
  13. SECTRAL [Concomitant]
  14. CONTRAMAL [Concomitant]
  15. NICOPATCH [Concomitant]

REACTIONS (4)
  - ANAPHYLACTIC SHOCK [None]
  - BRONCHOSPASM [None]
  - HYPOTENSION [None]
  - TACHYCARDIA [None]
